FAERS Safety Report 16928072 (Version 2)
Quarter: 2019Q4

REPORT INFORMATION
  Report Type: Spontaneous
  Country: US (occurrence: US)
  Receive Date: 20191017
  Receipt Date: 20191211
  Transmission Date: 20200122
  Serious: No
  Sender: FDA-Public Use
  Company Number: US-BIOGEN-2019BI00796774

PATIENT

DRUGS (1)
  1. TYSABRI [Suspect]
     Active Substance: NATALIZUMAB
     Indication: MULTIPLE SCLEROSIS
     Route: 065

REACTIONS (6)
  - Dizziness [Unknown]
  - Feeling abnormal [Unknown]
  - Asthenia [Unknown]
  - Fall [Recovered/Resolved]
  - Gait disturbance [Unknown]
  - Depression [Unknown]
